FAERS Safety Report 22271594 (Version 1)
Quarter: 2023Q2

REPORT INFORMATION
  Report Type: Spontaneous
  Country: FR (occurrence: FR)
  Receive Date: 20230502
  Receipt Date: 20230502
  Transmission Date: 20230721
  Serious: Yes (Life-Threatening, Hospitalization)
  Sender: FDA-Public Use
  Company Number: None

PATIENT
  Age: 35 Year
  Sex: Female
  Weight: 58 kg

DRUGS (11)
  1. ATROPINE SULFATE [Suspect]
     Active Substance: ATROPINE SULFATE
     Indication: General anaesthesia
     Dosage: AT 10H50
     Dates: start: 20230327, end: 20230327
  2. LIDOCAINE [Suspect]
     Active Substance: LIDOCAINE
     Indication: General anaesthesia
     Dosage: AT 08H30
     Dates: start: 20230327, end: 20230327
  3. SUFENTANIL [Suspect]
     Active Substance: SUFENTANIL
     Indication: General anaesthesia
     Dosage: 3 INJECTIONS FROM 08H30 TO 10H00
     Dates: start: 20230327, end: 20230327
  4. NIMBEX [Suspect]
     Active Substance: CISATRACURIUM BESYLATE
     Indication: General anaesthesia
     Dosage: 3 INJECTIONS FROM 08H30 TO 10H30
     Dates: start: 20230327, end: 20230327
  5. PROSTIGMIN [Suspect]
     Active Substance: NEOSTIGMINE BROMIDE
     Indication: General anaesthesia
     Dosage: AT 10H50
     Dates: start: 20230327, end: 20230327
  6. ACUPAN [Suspect]
     Active Substance: NEFOPAM HYDROCHLORIDE
     Indication: General anaesthesia
     Dosage: AT 09H50
     Dates: start: 20230327, end: 20230327
  7. CEFAZOLIN [Suspect]
     Active Substance: CEFAZOLIN
     Indication: Antibiotic prophylaxis
     Dosage: AT 8H40
     Dates: start: 20230327, end: 20230327
  8. PERFALGAN [Suspect]
     Active Substance: ACETAMINOPHEN
     Indication: General anaesthesia
     Dosage: AT 09H50
     Dates: start: 20230327, end: 20230327
  9. PROPOFOL [Suspect]
     Active Substance: PROPOFOL
     Indication: General anaesthesia
     Dosage: AT 08H30
     Dates: start: 20230327, end: 20230327
  10. KETAMINE [Suspect]
     Active Substance: KETAMINE
     Indication: General anaesthesia
     Dosage: AT 08H30
     Dates: start: 20230327, end: 20230327
  11. KETOPROFEN [Suspect]
     Active Substance: KETOPROFEN
     Indication: General anaesthesia
     Dosage: STRENGTH: 100 MG, AT 09H50
     Dates: start: 20230327, end: 20230327

REACTIONS (1)
  - Anaphylactic reaction [Recovered/Resolved]

NARRATIVE: CASE EVENT DATE: 20230327
